FAERS Safety Report 21348946 (Version 4)
Quarter: 2022Q4

REPORT INFORMATION
  Report Type: Spontaneous
  Country: CZ (occurrence: CZ)
  Receive Date: 20220919
  Receipt Date: 20221012
  Transmission Date: 20230112
  Serious: Yes (Other)
  Sender: FDA-Public Use
  Company Number: CZ-STADA-255249

PATIENT
  Age: 53 Year
  Sex: Female

DRUGS (15)
  1. AZACITIDINE [Suspect]
     Active Substance: AZACITIDINE
     Indication: Chloroma
     Dosage: 75 MILLIGRAM/SQ. METER, FOR 5 DAYS
     Route: 058
     Dates: start: 202111
  2. AZACITIDINE [Suspect]
     Active Substance: AZACITIDINE
     Indication: Myelodysplastic syndrome
     Dosage: SECOND CYCLE
     Route: 058
     Dates: start: 202112
  3. AZACITIDINE [Suspect]
     Active Substance: AZACITIDINE
     Dosage: UNK
     Route: 065
  4. VENETOCLAX [Suspect]
     Active Substance: VENETOCLAX
     Indication: Chloroma
     Dosage: 400 MILLIGRAM, QD
     Route: 048
     Dates: start: 202112
  5. VENETOCLAX [Suspect]
     Active Substance: VENETOCLAX
     Indication: Myelodysplastic syndrome
     Dosage: 100 MILLIGRAM, QD
     Route: 048
     Dates: start: 202111, end: 202112
  6. VENETOCLAX [Suspect]
     Active Substance: VENETOCLAX
     Dosage: 400 MG,QD,
     Route: 065
  7. VENETOCLAX [Suspect]
     Active Substance: VENETOCLAX
     Dosage: 400 MILLIGRAM
     Route: 065
     Dates: start: 202111
  8. VENETOCLAX [Suspect]
     Active Substance: VENETOCLAX
     Dosage: SECOND CYCLE
     Route: 048
     Dates: start: 202112
  9. VENETOCLAX [Suspect]
     Active Substance: VENETOCLAX
     Dosage: FIRST CYCLE,
     Route: 048
     Dates: start: 202111
  10. VENETOCLAX [Suspect]
     Active Substance: VENETOCLAX
     Dosage: 100 MG, QD
     Route: 065
     Dates: start: 202111
  11. VENETOCLAX [Suspect]
     Active Substance: VENETOCLAX
     Dosage: 400 MG, QD
     Route: 065
     Dates: start: 202112
  12. VORICONAZOLE [Concomitant]
     Active Substance: VORICONAZOLE
     Indication: Antifungal prophylaxis
     Dosage: UNK
     Route: 065
     Dates: start: 202111, end: 202112
  13. VORICONAZOLE [Concomitant]
     Active Substance: VORICONAZOLE
     Indication: Fusarium infection
  14. CYTARABINE [Concomitant]
     Active Substance: CYTARABINE
     Indication: Chloroma
     Dosage: HIGH-DOSE AS INDUCTION CHEMOTHERAPY
     Route: 065
     Dates: start: 202107
  15. MITOXANTRONE [Concomitant]
     Active Substance: MITOXANTRONE HYDROCHLORIDE
     Indication: Chloroma
     Dosage: HIGH-DOSE AS INDUCTION CHEMOTHERAPY
     Route: 065
     Dates: start: 202107

REACTIONS (4)
  - Haematotoxicity [Unknown]
  - Myelosuppression [Not Recovered/Not Resolved]
  - Off label use [Unknown]
  - Product use in unapproved indication [Unknown]
